FAERS Safety Report 21484039 (Version 1)
Quarter: 2022Q4

REPORT INFORMATION
  Report Type: Spontaneous
  Country: GB (occurrence: GB)
  Receive Date: 20221020
  Receipt Date: 20221020
  Transmission Date: 20230113
  Serious: Yes (Other)
  Sender: FDA-Public Use
  Company Number: GB-MHRA-MED-202210101456016340-ZNBVH

PATIENT
  Age: 13 Year
  Sex: Male

DRUGS (2)
  1. SERTRALINE [Suspect]
     Active Substance: SERTRALINE HYDROCHLORIDE
     Indication: Adverse drug reaction
     Dosage: 50 MILLIGRAM, EVERY MORNING
     Route: 065
     Dates: start: 202109
  2. INTUNIV [Suspect]
     Active Substance: GUANFACINE HYDROCHLORIDE
     Indication: Adverse drug reaction
     Dosage: 2 MILLIGRAM, AT BED TIME
     Route: 065
     Dates: start: 2020

REACTIONS (1)
  - Ophthalmological examination [Unknown]

NARRATIVE: CASE EVENT DATE: 20220801
